FAERS Safety Report 7558562-1 (Version None)
Quarter: 2011Q2

REPORT INFORMATION
  Report Type: 
  Country: None (occurrence: None)
  Receive Date: 20110621
  Receipt Date: 20110610
  Transmission Date: 20111010
  Serious: Yes (Hospitalization)
  Sender: FDA-Public Use
  Company Number: US-BIOGENIDEC-2011BI003052

PATIENT
  Sex: Female

DRUGS (1)
  1. TYSABRI [Suspect]
     Indication: MULTIPLE SCLEROSIS
     Route: 042
     Dates: start: 20090506, end: 20091111

REACTIONS (19)
  - BALANCE DISORDER [None]
  - COORDINATION ABNORMAL [None]
  - BACK PAIN [None]
  - SLEEP DISORDER [None]
  - FATIGUE [None]
  - ARTHRITIS [None]
  - FALL [None]
  - ANGER [None]
  - MEMORY IMPAIRMENT [None]
  - PAIN IN EXTREMITY [None]
  - CENTRAL NERVOUS SYSTEM LESION [None]
  - ROAD TRAFFIC ACCIDENT [None]
  - ABASIA [None]
  - SPINAL OPERATION [None]
  - WEIGHT DECREASED [None]
  - MULTIPLE SCLEROSIS RELAPSE [None]
  - ANXIETY [None]
  - GAIT DISTURBANCE [None]
  - PAIN [None]
